FAERS Safety Report 26135094 (Version 1)
Quarter: 2025Q4

REPORT INFORMATION
  Report Type: Spontaneous
  Country: US (occurrence: US)
  Receive Date: 20251209
  Receipt Date: 20251209
  Transmission Date: 20260118
  Serious: No
  Sender: QUAGEN PHARMACEUTICALS
  Company Number: US-QUAGEN-2025QUASPO00882

PATIENT

DRUGS (2)
  1. OXYCODONE HYDROCHLORIDE [Suspect]
     Active Substance: OXYCODONE HYDROCHLORIDE
     Indication: Pain in extremity
     Dosage: AT 05 PM
     Route: 065
  2. LYRICA [Suspect]
     Active Substance: PREGABALIN
     Indication: Pain in extremity
     Dosage: AT 05 PM
     Route: 065

REACTIONS (4)
  - Nightmare [Unknown]
  - Hangover [Unknown]
  - Dry mouth [Unknown]
  - Insomnia [Unknown]

NARRATIVE: CASE EVENT DATE: 20251101
